FAERS Safety Report 16375047 (Version 3)
Quarter: 2019Q4

REPORT INFORMATION
  Report Type: Report from Study
  Country: None (occurrence: US)
  Receive Date: 20190531
  Receipt Date: 20191226
  Transmission Date: 20200122
  Serious: Yes (Other)
  Sender: FDA-Public Use
  Company Number: US-ABBVIE-19K-163-2802621-00

PATIENT
  Age: 53 Year
  Sex: Female
  Weight: 120.76 kg

DRUGS (2)
  1. HUMIRA [Suspect]
     Active Substance: ADALIMUMAB
     Indication: PSORIASIS
     Route: 058
  2. DEUILACT [Concomitant]
     Indication: PRODUCT USED FOR UNKNOWN INDICATION

REACTIONS (8)
  - Pneumothorax [Recovering/Resolving]
  - Drug ineffective [Unknown]
  - Dyspnoea [Unknown]
  - Rib fracture [Recovering/Resolving]
  - Road traffic accident [Recovering/Resolving]
  - Pneumonia [Recovered/Resolved]
  - Head injury [Recovering/Resolving]
  - Scar [Unknown]

NARRATIVE: CASE EVENT DATE: 201812
